FAERS Safety Report 14672704 (Version 2)
Quarter: 2019Q1

REPORT INFORMATION
  Report Type: Report from Study
  Country: IT (occurrence: IT)
  Receive Date: 20180323
  Receipt Date: 20190119
  Transmission Date: 20190417
  Serious: Yes (Other)
  Sender: FDA-Public Use
  Company Number: IT-ACCORD-064931

PATIENT
  Age: 75 Year
  Sex: Male

DRUGS (1)
  1. DOCETAXEL ACCORD [Suspect]
     Active Substance: DOCETAXEL
     Indication: PROSTATE CANCER
     Dosage: 20MG/1 ML CONCENTRATE FOR SOLUTION FOR INFUSION
     Dates: start: 20170608, end: 20171214

REACTIONS (1)
  - Nail dystrophy [Recovered/Resolved]

NARRATIVE: CASE EVENT DATE: 20171219
